FAERS Safety Report 15047844 (Version 2)
Quarter: 2018Q4

REPORT INFORMATION
  Report Type: Spontaneous
  Country: US (occurrence: US)
  Receive Date: 20180621
  Receipt Date: 20181114
  Transmission Date: 20190204
  Serious: Yes (Disabling, Other)
  Sender: FDA-Public Use
  Company Number: US-ASTRAZENECA-2018SE79007

PATIENT
  Age: 651 Month
  Sex: Female
  Weight: 59 kg

DRUGS (46)
  1. AZITHROMYCIN ANHYDROUS. [Concomitant]
     Active Substance: AZITHROMYCIN ANHYDROUS
     Dates: start: 20101018
  2. AMOXICILLIN. [Concomitant]
     Active Substance: AMOXICILLIN
     Dates: start: 201010, end: 201512
  3. TACROLIMUS. [Concomitant]
     Active Substance: TACROLIMUS
     Dates: start: 20111010
  4. FIORINAL [Concomitant]
     Active Substance: ASPIRIN\BUTALBITAL\CAFFEINE
  5. MAXALT [Concomitant]
     Active Substance: RIZATRIPTAN BENZOATE
  6. ONDANSETRON [Concomitant]
     Active Substance: ONDANSETRON
  7. ADDERALL XR [Concomitant]
     Active Substance: AMPHETAMINE ASPARTATE\AMPHETAMINE SULFATE\DEXTROAMPHETAMINE SACCHARATE\DEXTROAMPHETAMINE SULFATE
  8. NEXIUM [Suspect]
     Active Substance: ESOMEPRAZOLE MAGNESIUM
     Indication: GASTROOESOPHAGEAL REFLUX DISEASE
     Dosage: GENERIC
     Route: 065
     Dates: start: 20160311, end: 20160611
  9. NEXIUM [Suspect]
     Active Substance: ESOMEPRAZOLE MAGNESIUM
     Indication: GASTROOESOPHAGEAL REFLUX DISEASE
     Route: 048
     Dates: start: 20081005
  10. LISINOPRIL. [Concomitant]
     Active Substance: LISINOPRIL
     Dates: start: 201211, end: 201611
  11. TORSEMIDE. [Concomitant]
     Active Substance: TORSEMIDE
     Dates: start: 201002, end: 201111
  12. EPOGEN [Concomitant]
     Active Substance: ERYTHROPOIETIN
  13. LUNESTA [Concomitant]
     Active Substance: ESZOPICLONE
  14. PRILOSEC [Concomitant]
     Active Substance: OMEPRAZOLE MAGNESIUM
     Route: 048
     Dates: start: 20021112
  15. MYFORTIC [Concomitant]
     Active Substance: MYCOPHENOLATE SODIUM
  16. PANTOPRAZOLE [Suspect]
     Active Substance: PANTOPRAZOLE
     Indication: GASTROOESOPHAGEAL REFLUX DISEASE
     Route: 065
     Dates: start: 20090521, end: 20090621
  17. DIGOXIN. [Concomitant]
     Active Substance: DIGOXIN
  18. PREDNISONE. [Concomitant]
     Active Substance: PREDNISONE
  19. SIMVASTATIN. [Concomitant]
     Active Substance: SIMVASTATIN
  20. LEVOTHYROXINE. [Concomitant]
     Active Substance: LEVOTHYROXINE
  21. NEXIUM [Suspect]
     Active Substance: ESOMEPRAZOLE MAGNESIUM
     Indication: GASTROOESOPHAGEAL REFLUX DISEASE
     Route: 048
     Dates: start: 20090829
  22. DOXYCYCLIN [Concomitant]
     Active Substance: DOXYCYCLINE
     Dates: start: 201301
  23. LOSARTAN. [Concomitant]
     Active Substance: LOSARTAN
     Dates: start: 201211, end: 201611
  24. MINOCYCLINE [Concomitant]
     Active Substance: MINOCYCLINE\MINOCYCLINE HYDROCHLORIDE
     Dates: start: 200605, end: 200811
  25. CLONAZEPAM. [Concomitant]
     Active Substance: CLONAZEPAM
  26. RESTORIL [Concomitant]
     Active Substance: TEMAZEPAM
  27. CYMBALTA [Concomitant]
     Active Substance: DULOXETINE HYDROCHLORIDE
  28. ABILIFY [Concomitant]
     Active Substance: ARIPIPRAZOLE
  29. VALCYTE [Concomitant]
     Active Substance: VALGANCICLOVIR HYDROCHLORIDE
  30. SUMATRIPTAN. [Concomitant]
     Active Substance: SUMATRIPTAN
  31. PRAMIPEXOLE. [Concomitant]
     Active Substance: PRAMIPEXOLE
  32. FAMOTIDINE. [Concomitant]
     Active Substance: FAMOTIDINE
  33. DIGOXIN. [Concomitant]
     Active Substance: DIGOXIN
  34. TOPROL XL [Concomitant]
     Active Substance: METOPROLOL SUCCINATE
  35. ESTRATEST [Concomitant]
     Active Substance: ESTROGENS, ESTERIFIED\METHYLTESTOSTERONE
  36. XANAX [Concomitant]
     Active Substance: ALPRAZOLAM
  37. VALGANCICLOVIR. [Concomitant]
     Active Substance: VALGANCICLOVIR
  38. NEXIUM [Suspect]
     Active Substance: ESOMEPRAZOLE MAGNESIUM
     Indication: GASTROOESOPHAGEAL REFLUX DISEASE
     Route: 048
     Dates: start: 20080801, end: 20150329
  39. NEXIUM [Suspect]
     Active Substance: ESOMEPRAZOLE MAGNESIUM
     Indication: GASTROOESOPHAGEAL REFLUX DISEASE
     Route: 048
     Dates: start: 20160311, end: 20160609
  40. RENVELA [Concomitant]
     Active Substance: SEVELAMER CARBONATE
  41. METHOCARBAMOL. [Concomitant]
     Active Substance: METHOCARBAMOL
  42. NEXIUM [Suspect]
     Active Substance: ESOMEPRAZOLE MAGNESIUM
     Indication: GASTROOESOPHAGEAL REFLUX DISEASE
     Route: 048
     Dates: start: 2008, end: 2015
  43. NEXIUM [Suspect]
     Active Substance: ESOMEPRAZOLE MAGNESIUM
     Indication: GASTROOESOPHAGEAL REFLUX DISEASE
     Route: 048
     Dates: start: 2008, end: 2010
  44. CARBAMAZEPINE. [Concomitant]
     Active Substance: CARBAMAZEPINE
     Dates: start: 201004, end: 201112
  45. GABAPENTIN. [Concomitant]
     Active Substance: GABAPENTIN
  46. TOLTERODINE [Concomitant]
     Active Substance: TOLTERODINE

REACTIONS (4)
  - End stage renal disease [Unknown]
  - Renal failure [Not Recovered/Not Resolved]
  - Chronic kidney disease [Unknown]
  - Nephropathy [Not Recovered/Not Resolved]

NARRATIVE: CASE EVENT DATE: 200905
